FAERS Safety Report 4684440-1 (Version None)
Quarter: 2005Q2

REPORT INFORMATION
  Report Type: 
  Country: None (occurrence: None)
  Receive Date: 20050531
  Receipt Date: 20050317
  Transmission Date: 20051028
  Serious: Yes (Hospitalization, Other)
  Sender: FDA-Public Use
  Company Number: US_0503114073

PATIENT
  Age: 31 Year

DRUGS (16)
  1. ZYPREXA [Suspect]
     Indication: BIPOLAR DISORDER
     Dosage: 5 MG
     Route: 048
     Dates: start: 19990114
  2. CARBAMAZEPINE [Concomitant]
  3. RHINOCORT [Concomitant]
  4. NEURONTIN [Concomitant]
  5. AMBIEN [Concomitant]
  6. TRAZODONE [Concomitant]
  7. ALBUTEROL [Concomitant]
  8. FIORICET [Concomitant]
  9. SONATA [Concomitant]
  10. SEROQUEL [Concomitant]
  11. NASACORT AQ (TRIAMCINOLONE ACETONIDE) [Concomitant]
  12. CLARITIN [Concomitant]
  13. PATANOL [Concomitant]
  14. NAPROXEN SODIUM [Concomitant]
  15. XANAX (ALPRAZOLAM DUM) [Concomitant]
  16. ATIVAN [Concomitant]

REACTIONS (5)
  - DIABETES MELLITUS [None]
  - DIABETIC KETOACIDOSIS [None]
  - NOCTURIA [None]
  - POLYDIPSIA [None]
  - POLYURIA [None]
